FAERS Safety Report 9300466 (Version 1)
Quarter: 2013Q2

REPORT INFORMATION
  Report Type: Spontaneous
  Country: JP (occurrence: JP)
  Receive Date: 20130521
  Receipt Date: 20130521
  Transmission Date: 20140414
  Serious: Yes (Other)
  Sender: FDA-Public Use
  Company Number: JP-ASTELLAS-2013JP005959

PATIENT
  Age: 17 Year
  Sex: 0

DRUGS (9)
  1. PROGRAF [Suspect]
     Indication: LUPUS NEPHRITIS
     Route: 065
  2. PROGRAF [Suspect]
     Route: 065
  3. PREDNISOLONE [Concomitant]
     Indication: LUPUS NEPHRITIS
     Route: 048
  4. PREDNISOLONE [Concomitant]
     Route: 048
  5. PREDNISOLONE [Concomitant]
     Route: 048
  6. ENDOXAN                            /00021101/ [Concomitant]
     Indication: LUPUS NEPHRITIS
     Route: 065
  7. ENDOXAN                            /00021101/ [Concomitant]
     Route: 065
  8. MIZORIBINE [Concomitant]
     Indication: LUPUS NEPHRITIS
     Route: 048
  9. MIZORIBINE [Concomitant]
     Dosage: 550 MG, WEEKLY
     Route: 048

REACTIONS (2)
  - Drug ineffective [Unknown]
  - Lupus nephritis [Recovering/Resolving]
